FAERS Safety Report 18373176 (Version 2)
Quarter: 2020Q4

REPORT INFORMATION
  Report Type: Spontaneous
  Country: None (occurrence: US)
  Receive Date: 20201012
  Receipt Date: 20201217
  Transmission Date: 20210114
  Serious: No
  Sender: FDA-Public Use
  Company Number: US-NEXGEN PHARMA, INC.-2092676

PATIENT
  Age: 47 Year
  Sex: Female

DRUGS (1)
  1. BAC 7029 (BUATBITAL 50MG, ACETAMINOPHEN 300MG AND CAFFEINE 40MG) [Suspect]
     Active Substance: ACETAMINOPHEN\BUTALBITAL\CAFFEINE
     Indication: MIGRAINE
     Route: 048

REACTIONS (1)
  - Drug ineffective [Unknown]
